FAERS Safety Report 9160514 (Version 2)
Quarter: 2013Q3

REPORT INFORMATION
  Report Type: Spontaneous
  Country: KR (occurrence: None)
  Receive Date: 20130220
  Receipt Date: 20130815
  Transmission Date: 20140515
  Serious: Yes (Hospitalization, Other)
  Sender: FDA-Public Use
  Company Number: JP-2013-10338

PATIENT
  Age: 43 Year
  Sex: Male
  Weight: 94 kg

DRUGS (18)
  1. CILOSTAZOL [Suspect]
     Indication: CORONARY ARTERY DISEASE
     Route: 048
     Dates: start: 20110111, end: 20110422
  2. CILOSTAZOL [Suspect]
     Indication: CORONARY ARTERIAL STENT INSERTION
     Route: 048
     Dates: start: 20110111, end: 20110422
  3. ASPIRIN [Suspect]
     Indication: CORONARY ARTERY DISEASE
     Route: 048
  4. ASPIRIN [Suspect]
     Indication: CORONARY ARTERIAL STENT INSERTION
     Route: 048
  5. CLOPIDOGREL [Suspect]
     Indication: CORONARY ARTERY DISEASE
     Route: 048
     Dates: start: 20110111
  6. CLOPIDOGREL [Suspect]
     Indication: CORONARY ARTERIAL STENT INSERTION
     Route: 048
     Dates: start: 20110111
  7. DIAMICRON MR (GLICLAZIDE) [Concomitant]
  8. FLOSPAN (PHLOROGLUCINOL) [Concomitant]
  9. STILLEN [Concomitant]
  10. IXEL (MILNACIPRAN HYDROCHLORIDE) [Concomitant]
  11. LANSTON (LANSOPRAZOLE) [Concomitant]
  12. LIPITOR (ATORVASTATIN CALCIUM) [Concomitant]
  13. RYTMONORM (PROPAFENONE HYDROCHLORIDE) [Concomitant]
  14. VASTINAN MR (TRIMETAZIDINE HYDROCHLORIDE) [Concomitant]
  15. THIOCTACID HR (THIOCTIC ACID) [Concomitant]
  16. ULTRACET (PARACETAMOL, TRAMADOL HYDROCHLORIDE) [Concomitant]
  17. TYLENOL ER (PARACETAMOL) [Concomitant]
  18. ALPRAM (ALPRAZOLAM) [Concomitant]

REACTIONS (8)
  - Panic disorder [None]
  - Lumbar radiculopathy [None]
  - Spinal osteoarthritis [None]
  - Intervertebral disc space narrowing [None]
  - Palpitations [None]
  - Diplopia [None]
  - Chest discomfort [None]
  - Chest discomfort [None]
